FAERS Safety Report 16312075 (Version 2)
Quarter: 2019Q2

REPORT INFORMATION
  Report Type: Spontaneous
  Country: US (occurrence: US)
  Receive Date: 20190515
  Receipt Date: 20190519
  Transmission Date: 20190711
  Serious: No
  Sender: FDA-Public Use
  Company Number: US-009507513-1905USA006280

PATIENT
  Age: 62 Year
  Sex: Male

DRUGS (2)
  1. STROMECTOL [Suspect]
     Active Substance: IVERMECTIN
     Indication: SOMATIC DELUSION
     Dosage: MULTIPLE COURSES
  2. PERMETHRIN. [Concomitant]
     Active Substance: PERMETHRIN
     Indication: SOMATIC DELUSION

REACTIONS (1)
  - Product use in unapproved therapeutic environment [Unknown]
